FAERS Safety Report 4340976-4 (Version None)
Quarter: 2004Q2

REPORT INFORMATION
  Report Type: 
  Country: None (occurrence: None)
  Receive Date: 20040413
  Receipt Date: 20040401
  Transmission Date: 20050107
  Serious: Yes (Hospitalization)
  Sender: FDA-Public Use
  Company Number: 03P-062-0224861-01

PATIENT
  Age: 46 Year
  Sex: Male
  Weight: 91 kg

DRUGS (9)
  1. HUMIRA [Suspect]
     Indication: RHEUMATOID ARTHRITIS
     Dosage: 40 MG, 1 IN 2 WK, SUBCUTANEOUS
     Route: 058
     Dates: start: 20030204, end: 20030429
  2. CHLOROQUINE PHOSPHATE [Concomitant]
  3. METHOTREXATE SODIUM [Concomitant]
  4. SULFASALAZINE [Concomitant]
  5. LEFLUNOMIDE [Concomitant]
  6. PREDNISOLONE [Concomitant]
  7. DIDRONEL PMO ^NORWICH EATON^ [Concomitant]
  8. FUROSEMIDE [Concomitant]
  9. LORATADINE [Concomitant]

REACTIONS (3)
  - CALCULUS URETERIC [None]
  - HYDRONEPHROSIS [None]
  - PHIMOSIS [None]
